FAERS Safety Report 17844084 (Version 3)
Quarter: 2020Q3

REPORT INFORMATION
  Report Type: Spontaneous
  Country: DE (occurrence: DE)
  Receive Date: 20200601
  Receipt Date: 20200717
  Transmission Date: 20201103
  Serious: Yes (Other)
  Sender: FDA-Public Use
  Company Number: DE-BEH-2020117979

PATIENT
  Age: 58 Year
  Sex: Male

DRUGS (6)
  1. HIZENTRA [Suspect]
     Active Substance: HUMAN IMMUNOGLOBULIN G
     Dosage: 10 GRAM (50 ML), (2 NEEDLES, 25 ML EACH INJECTION SITE; INFUSION TIME: 6 H)
     Route: 058
     Dates: start: 20200508, end: 20200508
  2. HIZENTRA [Suspect]
     Active Substance: HUMAN IMMUNOGLOBULIN G
     Dosage: 10 GRAM (50 ML), (2 NEEDLES, 25 ML EACH INJECTION SITE; INFUSION TIME: 6 H)
     Route: 058
     Dates: start: 20200519, end: 20200519
  3. HIZENTRA [Suspect]
     Active Substance: HUMAN IMMUNOGLOBULIN G
     Dosage: 10 GRAM (50 ML), (2 NEEDLES, 25 ML EACH INJECTION SITE; INFUSION TIME: 6 H)
     Route: 058
     Dates: start: 20200512, end: 20200512
  4. HIZENTRA [Suspect]
     Active Substance: HUMAN IMMUNOGLOBULIN G
     Dosage: 10 GRAM, BIW
     Route: 058
  5. HIZENTRA [Suspect]
     Active Substance: HUMAN IMMUNOGLOBULIN G
     Indication: CHRONIC INFLAMMATORY DEMYELINATING POLYRADICULONEUROPATHY
     Dosage: 10 GRAM (50 ML), (2 NEEDLES, 25 ML EACH INJECTION SITE; INFUSION TIME: 4 H)
     Route: 058
     Dates: start: 20200505, end: 20200505
  6. HIZENTRA [Suspect]
     Active Substance: HUMAN IMMUNOGLOBULIN G
     Dosage: 10 GRAM (50 ML), (2 NEEDLES, 25 ML EACH INJECTION SITE; INFUSION TIME: 6 H)
     Route: 058
     Dates: start: 20200515, end: 20200515

REACTIONS (15)
  - Injection site pain [Recovered/Resolved]
  - Injection site swelling [Recovered/Resolved]
  - Injection site erythema [Recovered/Resolved]
  - Injection site pain [Recovered/Resolved]
  - Injection site pruritus [Recovered/Resolved]
  - Injection site erythema [Recovered/Resolved]
  - Injection site pain [Recovered/Resolved]
  - Injection site warmth [Recovered/Resolved]
  - Injection site erythema [Recovered/Resolved]
  - Injection site warmth [Recovered/Resolved]
  - Injection site warmth [Recovered/Resolved]
  - Injection site swelling [Recovered/Resolved]
  - Injection site pain [Recovered/Resolved]
  - Injection site pruritus [Recovered/Resolved]
  - Injection site pain [Recovered/Resolved]

NARRATIVE: CASE EVENT DATE: 20200505
